FAERS Safety Report 14122979 (Version 1)
Quarter: 2017Q4

REPORT INFORMATION
  Report Type: Spontaneous
  Country: US (occurrence: US)
  Receive Date: 20171024
  Receipt Date: 20171024
  Transmission Date: 20180321
  Serious: Yes (Hospitalization)
  Sender: FDA-Public Use
  Company Number: None

PATIENT
  Age: 22 Year
  Sex: Female
  Weight: 60.1 kg

DRUGS (1)
  1. VENOFER [Suspect]
     Active Substance: IRON SUCROSE
     Indication: IRON DEFICIENCY ANAEMIA
     Dosage: ?          OTHER FREQUENCY:DAY 1 AND DAY 14;?INTRAVENOUS (NOT OTHERWISE SPECIFIED)?
     Route: 042
     Dates: start: 20171019, end: 20171019

REACTIONS (14)
  - Malaise [None]
  - Nausea [None]
  - Burning sensation [None]
  - Urticaria [None]
  - Urinary tract infection [None]
  - Dysuria [None]
  - Infusion related reaction [None]
  - Peripheral swelling [None]
  - Feeling abnormal [None]
  - Pollakiuria [None]
  - Feeling hot [None]
  - Vascular access complication [None]
  - Arthralgia [None]
  - Vomiting [None]

NARRATIVE: CASE EVENT DATE: 20171019
